FAERS Safety Report 5336476-5 (Version None)
Quarter: 2007Q2

REPORT INFORMATION
  Report Type: 
  Country: None (occurrence: None)
  Receive Date: 20070529
  Receipt Date: 20070521
  Transmission Date: 20071010
  Serious: Yes (Hospitalization)
  Sender: FDA-Public Use
  Company Number: TW-SOLVAY-00207032405

PATIENT
  Age: 11615 Day
  Sex: Female

DRUGS (8)
  1. PROGESTAN [Suspect]
     Indication: ILL-DEFINED DISORDER
     Dosage: DAILY DOSE: 600 MILLIGRAM(S)
     Route: 067
     Dates: start: 20070407, end: 20070424
  2. PROGESTERONE [Suspect]
     Indication: ILL-DEFINED DISORDER
     Dosage: DAILY DOSE: 100 MILLIGRAM(S)
     Route: 030
     Dates: start: 20070425, end: 20070426
  3. PROGESTEROL INJ [Suspect]
     Dosage: DAILY DOSE: 50 MILLIGRAM(S)
     Route: 030
     Dates: start: 20070427, end: 20070503
  4. ORG 36286 AND PLACEBO OR PUREGON AND PLACEBO [Suspect]
     Indication: OVARIAN HYPERSTIMULATION SYNDROME
     Dosage: DAILY DOSE: 100 IU/KILOGRAM
     Route: 058
     Dates: start: 20070329, end: 20070329
  5. ORG 36286 AND PLACEBO OR PUREGON AND PLACEBO [Suspect]
     Dosage: DAILY DOSE: 150 INTERNATIONAL UNIT(S)
     Route: 058
     Dates: start: 20070329, end: 20070404
  6. PUREGON [Suspect]
     Indication: OVARIAN HYPERSTIMULATION SYNDROME
     Dosage: DAILY DOSE: 150 INTERNATIONAL UNIT(S)
     Route: 058
     Dates: start: 20070405, end: 20070405
  7. ORGALUTRAN [Suspect]
     Indication: PROPHYLAXIS
     Dosage: DAILY DOSE: .25 MILLIGRAM(S)
     Route: 058
     Dates: start: 20070402, end: 20070405
  8. PREGNYL [Suspect]
     Indication: OVULATION INDUCTION
     Dosage: DAILY DOSE: 10000 INTERNATIONAL UNIT(S)
     Route: 058
     Dates: start: 20070405, end: 20070405

REACTIONS (1)
  - ECTOPIC PREGNANCY [None]
